FAERS Safety Report 10701007 (Version 1)
Quarter: 2015Q1

REPORT INFORMATION
  Report Type: Spontaneous
  Country: US (occurrence: None)
  Receive Date: 20150108
  Receipt Date: 20150108
  Transmission Date: 20150721
  Serious: Yes (Other)
  Sender: FDA-Public Use
  Company Number: None

PATIENT
  Age: 62 Year
  Sex: Female
  Weight: 70.31 kg

DRUGS (1)
  1. CLINDAMYCIN [Suspect]
     Active Substance: CLINDAMYCIN\CLINDAMYCIN PHOSPHATE
     Indication: ORAL INFECTION
     Dosage: 1 PILL THREE TIMES A DAY, THREE TIMES DAILY, TAKEN BY MOUTH
     Route: 048

REACTIONS (3)
  - No therapeutic response [None]
  - Product quality issue [None]
  - Infection [None]

NARRATIVE: CASE EVENT DATE: 20141114
